FAERS Safety Report 5271198-0 (Version None)
Quarter: 2007Q1

REPORT INFORMATION
  Report Type: 
  Country: None (occurrence: None)
  Receive Date: 20070321
  Receipt Date: 20070312
  Transmission Date: 20070707
  Serious: Yes (Death, Hospitalization)
  Sender: FDA-Public Use
  Company Number: JP-JNJFOC-20070300655

PATIENT
  Sex: Female

DRUGS (13)
  1. LEVOFLOXACIN [Suspect]
     Indication: CYSTITIS HAEMORRHAGIC
     Route: 048
  2. MAIBASTAN [Suspect]
     Indication: DRUG USE FOR UNKNOWN INDICATION
     Route: 048
  3. WARFARIN SODIUM [Concomitant]
     Indication: ATRIAL FIBRILLATION
     Route: 048
  4. ASPIRIN [Concomitant]
     Indication: ARTERIOSCLEROSIS
     Route: 048
  5. NORVASC [Concomitant]
     Indication: CARDIAC FAILURE
     Route: 048
  6. CARVEDILOL [Concomitant]
     Indication: CARDIAC FAILURE
     Route: 048
  7. COBATHROW [Concomitant]
     Indication: CARDIAC FAILURE
     Route: 048
  8. NORAGUARD [Concomitant]
     Route: 048
  9. BISOPROLOL FUMARATE [Concomitant]
     Indication: CARDIAC FAILURE
     Route: 048
  10. LUPRAC [Concomitant]
     Indication: CARDIAC FAILURE
     Route: 048
  11. URINORM [Concomitant]
     Indication: CARDIAC FAILURE
     Route: 048
  12. LOXONIN [Concomitant]
     Indication: THORACIC VERTEBRAL FRACTURE
     Route: 048
  13. SELBEX [Concomitant]
     Indication: THORACIC VERTEBRAL FRACTURE
     Route: 048

REACTIONS (3)
  - DEPRESSED LEVEL OF CONSCIOUSNESS [None]
  - RHABDOMYOLYSIS [None]
  - SHOCK [None]
